FAERS Safety Report 12683842 (Version 1)
Quarter: 2016Q3

REPORT INFORMATION
  Report Type: Spontaneous
  Country: US (occurrence: None)
  Receive Date: 20160824
  Receipt Date: 20160824
  Transmission Date: 20161109
  Serious: No
  Sender: FDA-Public Use
  Company Number: None

PATIENT
  Age: 58 Year
  Sex: Male

DRUGS (1)
  1. NOXAFIL [Suspect]
     Active Substance: POSACONAZOLE
     Indication: HEART AND LUNG TRANSPLANT
     Route: 048
     Dates: start: 20160820

REACTIONS (2)
  - Peripheral swelling [None]
  - Abdominal distension [None]
